FAERS Safety Report 21007637 (Version 1)
Quarter: 2022Q2

REPORT INFORMATION
  Report Type: Spontaneous
  Country: US (occurrence: US)
  Receive Date: 20220626
  Receipt Date: 20220626
  Transmission Date: 20220721
  Serious: No
  Sender: FDA-Public Use
  Company Number: US-drreddys-SPO/USA/22/0151138

PATIENT
  Age: 17 Year
  Sex: Female

DRUGS (2)
  1. ACCUTANE [Suspect]
     Active Substance: ISOTRETINOIN
     Indication: Product used for unknown indication
     Dosage: RMA ISSUE DATE: 30 DECEMBER 2021 10:59:51 AM, 26 JANUARY 2022 11:42:09 AM, 24 FEBRUARY 2022 10:49:22
  2. ACCUTANE [Suspect]
     Active Substance: ISOTRETINOIN
     Dosage: RMA ISSUE DATE: 06 APRIL 2022 03:26:16 PM, 04 MAY 2022 09:24:00 AM

REACTIONS (1)
  - Treatment noncompliance [Unknown]
